FAERS Safety Report 18854355 (Version 2)
Quarter: 2025Q1

REPORT INFORMATION
  Report Type: Spontaneous
  Country: CA (occurrence: CA)
  Receive Date: 20210205
  Receipt Date: 20250127
  Transmission Date: 20250409
  Serious: Yes (Death, Other)
  Sender: SPECGX
  Company Number: CA-SPECGX-T202100166

PATIENT
  Age: 11 Year
  Sex: Male
  Weight: 25 kg

DRUGS (14)
  1. METHADOSE [Suspect]
     Active Substance: METHADONE HYDROCHLORIDE
     Indication: Pain
     Route: 065
     Dates: start: 20191216
  2. CANNABIDIOL [Suspect]
     Active Substance: CANNABIDIOL
     Indication: Pain
     Route: 065
     Dates: start: 20200502
  3. CANNABIDIOL [Suspect]
     Active Substance: CANNABIDIOL
     Indication: Nausea
  4. DEXAMETHASONE SODIUM PHOSPHATE [Suspect]
     Active Substance: DEXAMETHASONE SODIUM PHOSPHATE
     Indication: Neoplasm progression
     Route: 065
     Dates: start: 20190424
  5. DINUTUXIMAB [Suspect]
     Active Substance: DINUTUXIMAB
     Indication: Neuroblastoma recurrent
     Route: 065
  6. DINUTUXIMAB [Suspect]
     Active Substance: DINUTUXIMAB
     Indication: Metastases to liver
  7. DINUTUXIMAB [Suspect]
     Active Substance: DINUTUXIMAB
     Indication: Metastases to bone
  8. FAMOTIDINE [Suspect]
     Active Substance: FAMOTIDINE
     Indication: Gastrointestinal disorder
     Route: 065
     Dates: start: 20200310
  9. GABAPENTIN [Suspect]
     Active Substance: GABAPENTIN
     Indication: Pain
     Route: 065
  10. HYDROMORPHONE HYDROCHLORIDE [Suspect]
     Active Substance: HYDROMORPHONE HYDROCHLORIDE
     Indication: Pain
     Route: 065
     Dates: start: 20191216
  11. IRINOTECAN [Suspect]
     Active Substance: IRINOTECAN
     Indication: Neuroblastoma recurrent
     Route: 065
  12. LORAZEPAM [Suspect]
     Active Substance: LORAZEPAM
     Indication: Anxiety
     Route: 065
     Dates: start: 20191216
  13. LORBRENA [Suspect]
     Active Substance: LORLATINIB
     Indication: Neuroblastoma recurrent
     Dosage: 100 MILLIGRAM, QD
     Route: 048
     Dates: start: 20200412
  14. TEMOZOLOMIDE [Suspect]
     Active Substance: TEMOZOLOMIDE
     Indication: Neuroblastoma recurrent
     Route: 065

REACTIONS (13)
  - Neuroblastoma recurrent [Fatal]
  - Nerve compression [Unknown]
  - Anaemia [Recovered/Resolved]
  - Thrombocytopenia [Not Recovered/Not Resolved]
  - Leukocytosis [Unknown]
  - Malignant cranial nerve neoplasm [Unknown]
  - Retro-orbital neoplasm [Unknown]
  - Metastases to liver [Unknown]
  - Metastases to spine [Unknown]
  - Fatigue [Unknown]
  - Pallor [Unknown]
  - Product use issue [Unknown]
  - Product use in unapproved indication [Unknown]

NARRATIVE: CASE EVENT DATE: 20191216
